FAERS Safety Report 8111015-4 (Version None)
Quarter: 2012Q1

REPORT INFORMATION
  Report Type: 
  Country: None (occurrence: None)
  Receive Date: 20120203
  Receipt Date: 20110215
  Transmission Date: 20120608
  Serious: No
  Sender: FDA-Public Use
  Company Number: US-GLAXOSMITHKLINE-A0913769A

PATIENT
  Age: 84 Year
  Sex: Female

DRUGS (12)
  1. VERAPAMIL [Concomitant]
  2. XALATAN [Concomitant]
  3. ACETAMINOPHEN [Concomitant]
  4. LEVOTHYROXINE SODIUM [Concomitant]
  5. STOOL SOFTENER [Concomitant]
  6. MULTI-VITAMIN [Concomitant]
  7. VITAMIN B-12 [Concomitant]
  8. ZOLOFT [Concomitant]
  9. LAMOTRIGINE [Suspect]
     Indication: BIPOLAR DISORDER
     Dosage: 350MG PER DAY
     Route: 048
     Dates: start: 20040101
  10. SEROQUEL [Concomitant]
  11. LIPITOR [Concomitant]
  12. CALCITONIN SALMON [Concomitant]

REACTIONS (3)
  - ERYTHEMA [None]
  - PRURITUS [None]
  - RASH [None]
